FAERS Safety Report 7636788-6 (Version None)
Quarter: 2011Q3

REPORT INFORMATION
  Report Type: 
  Country: None (occurrence: None)
  Receive Date: 20110719
  Receipt Date: 20110707
  Transmission Date: 20111222
  Serious: Yes (Death)
  Sender: FDA-Public Use
  Company Number: 2011P1007639

PATIENT
  Age: 21 Year
  Sex: Male

DRUGS (2)
  1. PREDNISONE [Concomitant]
  2. SOLODYN [Suspect]
     Indication: ACNE
     Dosage: 80 MG;X1;PO
     Route: 048

REACTIONS (1)
  - RESPIRATORY FAILURE [None]
